FAERS Safety Report 21440607 (Version 1)
Quarter: 2022Q4

REPORT INFORMATION
  Report Type: Spontaneous
  Country: US (occurrence: None)
  Receive Date: 20221010
  Receipt Date: 20221010
  Transmission Date: 20230112
  Serious: Yes (Hospitalization)
  Sender: FDA-Public Use
  Company Number: None

PATIENT
  Age: 80 Year
  Sex: Male

DRUGS (2)
  1. APIXABAN [Suspect]
     Active Substance: APIXABAN
     Indication: Drug therapy
     Dates: start: 20220909, end: 20220930
  2. ASPIRIN [Suspect]
     Active Substance: ASPIRIN
     Indication: Drug therapy
     Dates: start: 20220909

REACTIONS (2)
  - Upper gastrointestinal haemorrhage [None]
  - Syncope [None]

NARRATIVE: CASE EVENT DATE: 20221003
